FAERS Safety Report 8045589-9 (Version None)
Quarter: 2012Q1

REPORT INFORMATION
  Report Type: 
  Country: None (occurrence: None)
  Receive Date: 20120113
  Receipt Date: 20120106
  Transmission Date: 20120608
  Serious: Yes (Hospitalization, Disabling, Other)
  Sender: FDA-Public Use
  Company Number: US-MERCK-1108USA01137

PATIENT
  Age: 62 Year
  Sex: Female
  Weight: 66 kg

DRUGS (3)
  1. FOSAMAX [Suspect]
     Indication: OSTEOPOROSIS
     Route: 048
     Dates: start: 20000101, end: 20100601
  2. VYTORIN [Concomitant]
     Route: 048
  3. TRICOR [Concomitant]
     Route: 065

REACTIONS (31)
  - FALL [None]
  - VITAMIN D DEFICIENCY [None]
  - TYPE 2 DIABETES MELLITUS [None]
  - CAROTID ARTERY DISEASE [None]
  - MITRAL VALVE DISEASE [None]
  - ROAD TRAFFIC ACCIDENT [None]
  - SPINAL FRACTURE [None]
  - OEDEMA [None]
  - INTESTINAL ANGINA [None]
  - AORTIC STENOSIS [None]
  - FEMORAL ARTERIAL STENOSIS [None]
  - GASTROENTERITIS [None]
  - BLINDNESS TRANSIENT [None]
  - SPONDYLITIS [None]
  - ACUTE SINUSITIS [None]
  - ROTATOR CUFF SYNDROME [None]
  - PAIN IN EXTREMITY [None]
  - NAUSEA [None]
  - GASTROOESOPHAGEAL REFLUX DISEASE [None]
  - SPONDYLOLISTHESIS [None]
  - COCCYDYNIA [None]
  - DUODENITIS [None]
  - COLITIS ISCHAEMIC [None]
  - PERIPHERAL VASCULAR DISORDER [None]
  - DIABETES MELLITUS INADEQUATE CONTROL [None]
  - ANAEMIA OF CHRONIC DISEASE [None]
  - AORTIC ANEURYSM [None]
  - FEMUR FRACTURE [None]
  - HAEMORRHAGIC ANAEMIA [None]
  - INTERVERTEBRAL DISC DEGENERATION [None]
  - SCAPULA FRACTURE [None]
